FAERS Safety Report 18309573 (Version 2)
Quarter: 2020Q4

REPORT INFORMATION
  Report Type: Report from Study
  Country: None (occurrence: US)
  Receive Date: 20200925
  Receipt Date: 20201210
  Transmission Date: 20210113
  Serious: Yes (Other)
  Sender: FDA-Public Use
  Company Number: US-ABBVIE-20K-163-3574105-00

PATIENT
  Sex: Female

DRUGS (2)
  1. VENCLEXTA [Suspect]
     Active Substance: VENETOCLAX
     Route: 048
     Dates: start: 20200210
  2. VENCLEXTA [Suspect]
     Active Substance: VENETOCLAX
     Indication: ACUTE MYELOID LEUKAEMIA
     Route: 048
     Dates: start: 202001, end: 2020

REACTIONS (9)
  - Atrial fibrillation [Not Recovered/Not Resolved]
  - Fatigue [Unknown]
  - Glomerular filtration rate abnormal [Unknown]
  - Muscle strain [Not Recovered/Not Resolved]
  - Full blood count abnormal [Unknown]
  - Constipation [Not Recovered/Not Resolved]
  - Blood lactate dehydrogenase abnormal [Unknown]
  - Fall [Unknown]
  - Spinal fracture [Not Recovered/Not Resolved]

NARRATIVE: CASE EVENT DATE: 2020
